FAERS Safety Report 16491508 (Version 1)
Quarter: 2019Q2

REPORT INFORMATION
  Report Type: Spontaneous
  Country: ES (occurrence: ES)
  Receive Date: 20190628
  Receipt Date: 20190628
  Transmission Date: 20190711
  Serious: Yes (Other)
  Sender: FDA-Public Use
  Company Number: ES-ASTELLAS-2019US026056

PATIENT
  Age: 73 Year
  Sex: Male

DRUGS (4)
  1. DIAZEPAM. [Concomitant]
     Active Substance: DIAZEPAM
     Indication: FEELING OF RELAXATION
     Dosage: 1 DF, ONCE DAILY (1 TABLET PER DAY)
     Route: 048
  2. BETMIGA [Suspect]
     Active Substance: MIRABEGRON
     Indication: URINARY INCONTINENCE
     Route: 048
     Dates: start: 20190620, end: 20190620
  3. VOLUTSA [Concomitant]
     Active Substance: SOLIFENACIN\TAMSULOSIN
     Indication: PROSTATIC DISORDER
  4. VOLUTSA [Concomitant]
     Active Substance: SOLIFENACIN\TAMSULOSIN
     Indication: URINARY INCONTINENCE
     Dosage: 1 DF, ONCE DAILY (1 TABLET EVERY MORNING PER DAY)
     Route: 048

REACTIONS (3)
  - Micturition urgency [Not Recovered/Not Resolved]
  - Urinary incontinence [Not Recovered/Not Resolved]
  - Pollakiuria [Not Recovered/Not Resolved]

NARRATIVE: CASE EVENT DATE: 20190620
